FAERS Safety Report 8730992 (Version 2)
Quarter: 2013Q2

REPORT INFORMATION
  Report Type: Spontaneous
  Country: US (occurrence: None)
  Receive Date: 20120801
  Receipt Date: 20130507
  Transmission Date: 20140414
  Serious: Yes (Hospitalization, Other)
  Sender: FDA-Public Use
  Company Number: ADR-2012-01377

PATIENT
  Sex: Female

DRUGS (2)
  1. LIORESAL [Suspect]
     Indication: MUSCLE SPASTICITY
     Route: 037
  2. LIORESAL [Suspect]
     Indication: CEREBRAL PALSY
     Route: 037

REACTIONS (6)
  - INFECTED SKIN ULCER [None]
  - WOUND SEPSIS [None]
  - MALAISE [None]
  - HYPOTONIA [None]
  - MUSCLE SPASMS [None]
  - Oropharyngeal pain [None]
